FAERS Safety Report 7277526-9 (Version None)
Quarter: 2011Q1

REPORT INFORMATION
  Report Type: 
  Country: None (occurrence: None)
  Receive Date: 20110207
  Receipt Date: 20110125
  Transmission Date: 20110831
  Serious: No
  Sender: FDA-Public Use
  Company Number: US-ELI_LILLY_AND_COMPANY-US201002003910

PATIENT
  Sex: Female

DRUGS (4)
  1. FORTEO [Suspect]
     Dosage: 20 UG, DAILY (1/D)
  2. FORTEO [Suspect]
     Dosage: 20 UG, DAILY (1/D)
  3. FORTEO [Suspect]
     Indication: OSTEOPOROSIS
     Dosage: 20 UG, DAILY (1/D)
     Dates: start: 20090801
  4. FORTEO [Suspect]
     Dosage: UNK, UNKNOWN

REACTIONS (13)
  - DYSSTASIA [None]
  - MEDICATION ERROR [None]
  - NAUSEA [None]
  - VITAMIN D DECREASED [None]
  - FALL [None]
  - VOMITING [None]
  - PARKINSON'S DISEASE [None]
  - BALANCE DISORDER [None]
  - BODY HEIGHT DECREASED [None]
  - BLOOD CALCIUM INCREASED [None]
  - OSTEOPOROSIS [None]
  - SCOLIOSIS [None]
  - OSTEOARTHRITIS [None]
